FAERS Safety Report 9187028 (Version 1)
Quarter: 2013Q1

REPORT INFORMATION
  Report Type: Spontaneous
  Country: DE (occurrence: DE)
  Receive Date: 20130325
  Receipt Date: 20130325
  Transmission Date: 20140127
  Serious: Yes (Hospitalization)
  Sender: FDA-Public Use
  Company Number: DE-JNJFOC-20130310175

PATIENT
  Age: 22 Year
  Sex: Female
  Weight: 56 kg

DRUGS (3)
  1. XARELTO [Suspect]
     Indication: OSTEOSYNTHESIS
     Route: 048
     Dates: start: 20121101, end: 20121116
  2. PARACETAMOL [Concomitant]
     Dates: start: 20120919
  3. PANTOPRAZOLE [Concomitant]
     Route: 065
     Dates: start: 20120919

REACTIONS (8)
  - Pancreatitis [Recovering/Resolving]
  - Abdominal pain [Recovering/Resolving]
  - Enzyme abnormality [Recovering/Resolving]
  - Aspartate aminotransferase increased [Recovering/Resolving]
  - Gamma-glutamyltransferase increased [Recovering/Resolving]
  - Blood alkaline phosphatase increased [Recovering/Resolving]
  - Laboratory test abnormal [Recovering/Resolving]
  - Alanine aminotransferase increased [Recovering/Resolving]
